FAERS Safety Report 9423069 (Version 2)
Quarter: 2013Q3

REPORT INFORMATION
  Report Type: Spontaneous
  Country: GB (occurrence: GB)
  Receive Date: 20130726
  Receipt Date: 20130802
  Transmission Date: 20140515
  Serious: Yes (Congenital Anomaly)
  Sender: FDA-Public Use
  Company Number: GB-GLAXOSMITHKLINE-B0909921A

PATIENT
  Sex: Female

DRUGS (2)
  1. LAMICTAL [Suspect]
     Indication: EPILEPSY
     Dosage: 225MG TWICE PER DAY
     Route: 064
     Dates: start: 201107, end: 201207
  2. FOLIC ACID [Suspect]
     Indication: SUPPLEMENTATION THERAPY
     Route: 064

REACTIONS (4)
  - Benign congenital hypotonia [Not Recovered/Not Resolved]
  - Exposure during breast feeding [Unknown]
  - Foetal exposure during pregnancy [Unknown]
  - Developmental delay [Unknown]
